FAERS Safety Report 9725369 (Version 1)
Quarter: 2013Q4

REPORT INFORMATION
  Report Type: Spontaneous
  Country: US (occurrence: None)
  Receive Date: 20131202
  Receipt Date: 20131202
  Transmission Date: 20140711
  Serious: No
  Sender: FDA-Public Use
  Company Number: None

PATIENT
  Age: 67 Year
  Sex: Female

DRUGS (7)
  1. BELVIQ [Suspect]
     Indication: WEIGHT DECREASED
     Dosage: ONE TABLET TO 2 TABLETS
     Route: 048
     Dates: start: 20131119, end: 20131124
  2. LIVOFLAVINOID PLUS [Concomitant]
  3. FISH OIL [Concomitant]
  4. VITAMIN B12 [Concomitant]
  5. PROBIOTIC [Concomitant]
  6. CALCIUM [Concomitant]
  7. MAGNESIUM [Concomitant]

REACTIONS (14)
  - Fatigue [None]
  - Arthralgia [None]
  - Vulvovaginal rash [None]
  - Rash pruritic [None]
  - Psoriasis [None]
  - Ear pruritus [None]
  - Dizziness [None]
  - Cough [None]
  - Sneezing [None]
  - Gait disturbance [None]
  - Dysarthria [None]
  - Memory impairment [None]
  - Listless [None]
  - Hypersomnia [None]
